FAERS Safety Report 9379920 (Version 1)
Quarter: 2013Q3

REPORT INFORMATION
  Report Type: Spontaneous
  Country: US (occurrence: US)
  Receive Date: 20130702
  Receipt Date: 20130702
  Transmission Date: 20140515
  Serious: Yes (Death, Other)
  Sender: FDA-Public Use
  Company Number: US-JNJFOC-20130618825

PATIENT
  Age: 6 Decade
  Sex: Female

DRUGS (2)
  1. XARELTO [Suspect]
     Indication: HYPERCOAGULATION
     Dosage: STRENGTH: 20 MG
     Route: 048
     Dates: end: 201301
  2. XARELTO [Suspect]
     Indication: NEOPLASM MALIGNANT
     Dosage: STRENGTH: 20 MG
     Route: 048
     Dates: end: 201301

REACTIONS (5)
  - Death [Fatal]
  - Thrombosis [Unknown]
  - Haemorrhage [Unknown]
  - Visual acuity reduced [Unknown]
  - Off label use [Unknown]
